FAERS Safety Report 5682512-6 (Version None)
Quarter: 2008Q1

REPORT INFORMATION
  Report Type: 
  Country: None (occurrence: None)
  Receive Date: 20080327
  Receipt Date: 20080317
  Transmission Date: 20080703
  Serious: Yes (Hospitalization, Other)
  Sender: FDA-Public Use
  Company Number: US-NOVOPROD-273202

PATIENT
  Age: 9 Year
  Sex: Female
  Weight: 52.154 kg

DRUGS (3)
  1. NOVOLOG [Suspect]
     Indication: TYPE 1 DIABETES MELLITUS
     Dosage: UNK IU, AC SLIDING SCALE
     Route: 058
     Dates: start: 20040101
  2. LANTUS [Suspect]
     Indication: TYPE 1 DIABETES MELLITUS
     Dosage: 15 IU, QD
     Route: 058
     Dates: start: 20040101
  3. NOVOLIN N [Concomitant]
     Indication: TYPE 1 DIABETES MELLITUS
     Dosage: 8 IU, QD ON SCHOOLDAYS
     Route: 058
     Dates: start: 20040101, end: 20080101

REACTIONS (2)
  - BLOOD GLUCOSE INCREASED [None]
  - CONVULSION [None]
